FAERS Safety Report 8295680-7 (Version None)
Quarter: 2012Q2

REPORT INFORMATION
  Report Type: 
  Country: None (occurrence: None)
  Receive Date: 20120418
  Receipt Date: 20100916
  Transmission Date: 20120825
  Serious: Yes (Hospitalization, Other)
  Sender: FDA-Public Use
  Company Number: CN-ALLERGAN-1017081US

PATIENT
  Age: 48 Year
  Sex: Female

DRUGS (2)
  1. BOTULINUM TOXIN TYPE A [Suspect]
     Indication: SKIN COSMETIC PROCEDURE
  2. BOTULINUM TOXIN TYPE A [Suspect]
     Indication: SKIN WRINKLING
     Dosage: 133 UNITS, SINGLE
     Route: 030

REACTIONS (13)
  - FATIGUE [None]
  - SPEECH DISORDER [None]
  - DRY MOUTH [None]
  - DIZZINESS [None]
  - MUSCULAR WEAKNESS [None]
  - TOXICITY TO VARIOUS AGENTS [None]
  - HYPOTONIA [None]
  - DYSPHAGIA [None]
  - DYSPNOEA [None]
  - FACIAL PARESIS [None]
  - SALIVARY HYPERSECRETION [None]
  - EYELID PTOSIS [None]
  - DYSURIA [None]
